FAERS Safety Report 5769139-2 (Version None)
Quarter: 2008Q2

REPORT INFORMATION
  Report Type: 
  Country: None (occurrence: None)
  Receive Date: 20080610
  Receipt Date: 20080521
  Transmission Date: 20081010
  Serious: Yes (Hospitalization)
  Sender: FDA-Public Use
  Company Number: ENT 2008-0074

PATIENT
  Sex: Male

DRUGS (1)
  1. COMTAN [Suspect]
     Indication: DRUG EFFECT DECREASED
     Dosage: 200 MG (100 MG, 2 IN 1 D) ORAL
     Route: 048
     Dates: start: 20080501

REACTIONS (1)
  - LIVER DISORDER [None]
